FAERS Safety Report 5485104-7 (Version None)
Quarter: 2007Q4

REPORT INFORMATION
  Report Type: 
  Country: None (occurrence: None)
  Receive Date: 20071015
  Receipt Date: 20071003
  Transmission Date: 20080405
  Serious: Yes (Other)
  Sender: FDA-Public Use
  Company Number: US-JNJFOC-20071001569

PATIENT
  Age: 34 Year
  Sex: Female

DRUGS (1)
  1. DURAGESIC-100 [Suspect]
     Indication: CLUSTER HEADACHE
     Route: 062

REACTIONS (3)
  - GRAND MAL CONVULSION [None]
  - OFF LABEL USE [None]
  - THERAPEUTIC RESPONSE DECREASED [None]
